FAERS Safety Report 15684433 (Version 2)
Quarter: 2019Q1

REPORT INFORMATION
  Report Type: Spontaneous
  Country: US (occurrence: US)
  Receive Date: 20181204
  Receipt Date: 20190122
  Transmission Date: 20190417
  Serious: Yes (Other)
  Sender: FDA-Public Use
  Company Number: US-GLAXOSMITHKLINE-US2018GSK209893

PATIENT
  Age: 61 Year
  Sex: Female

DRUGS (2)
  1. FLOLAN DILUENT PH 12 SOLUTION FOR INJECTION [Suspect]
     Active Substance: GLYCINE\MANNITOL\SODIUM CHLORIDE
     Indication: PULMONARY ARTERIAL HYPERTENSION
     Dosage: 49 NG/KG, UNK
     Dates: start: 20171006
  2. FLUARIX QUADRIVALENT 2018/2019 [Suspect]
     Active Substance: INFLUENZA A VIRUS A/SINGAPORE/GP1908/2015 IVR-180 (H1N1) ANTIGEN (FORMALDEHYDE INACTIVATED)\INFLUENZA A VIRUS A/SINGAPORE/INFIMH-16-0019/2016 NIB-104 (H3N2) ANTIGEN (FORMALDEHYDE INACTIVATED)\INFLUENZA B VIRUS B/MARYLAND/15/2016 BX-69A ANTIGEN (FORMALDEHYDE INACTIVATED)\INFLUENZA B VIRUS B/PHUKET/30
     Indication: PROPHYLAXIS
     Dates: start: 20181115, end: 20181115

REACTIONS (5)
  - Gallbladder disorder [Unknown]
  - Influenza like illness [Unknown]
  - Cholelithiasis [Unknown]
  - Influenza [Unknown]
  - Vaccination failure [Unknown]

NARRATIVE: CASE EVENT DATE: 20181115
